FAERS Safety Report 20067145 (Version 1)
Quarter: 2021Q4

REPORT INFORMATION
  Report Type: Report from Study
  Country: TW (occurrence: TW)
  Receive Date: 20211115
  Receipt Date: 20211115
  Transmission Date: 20220304
  Serious: Yes (Hospitalization, Other)
  Sender: FDA-Public Use
  Company Number: TW-BRISTOL-MYERS SQUIBB COMPANY-BMS-2021-118344

PATIENT
  Age: 68 Year
  Sex: Male

DRUGS (3)
  1. NIVOLUMAB [Suspect]
     Active Substance: NIVOLUMAB
     Indication: Nasopharyngeal cancer
     Dosage: 3MG/KG ON D1, D15
     Route: 042
     Dates: start: 20210810, end: 20210928
  2. IPILIMUMAB [Suspect]
     Active Substance: IPILIMUMAB
     Indication: Nasopharyngeal cancer
     Dosage: 1 MILLIGRAM/KILOGRAM, D1
     Route: 042
     Dates: start: 20210810, end: 20210928
  3. SULFAMETHOXAZOLE\TRIMETHOPRIM [Suspect]
     Active Substance: SULFAMETHOXAZOLE\TRIMETHOPRIM
     Indication: Prophylaxis
     Dosage: 400MG/80MG, QD
     Route: 048
     Dates: start: 20211014, end: 20211028

REACTIONS (1)
  - Drug reaction with eosinophilia and systemic symptoms [Recovering/Resolving]

NARRATIVE: CASE EVENT DATE: 20211028
